FAERS Safety Report 24788231 (Version 1)
Quarter: 2024Q4

REPORT INFORMATION
  Report Type: Spontaneous
  Country: CN (occurrence: CN)
  Receive Date: 20241230
  Receipt Date: 20241230
  Transmission Date: 20250115
  Serious: Yes (Disabling, Other)
  Sender: BAXTER
  Company Number: None

PATIENT
  Age: 22 Year
  Sex: Male
  Weight: 88.6 kg

DRUGS (6)
  1. CYCLOPHOSPHAMIDE [Suspect]
     Active Substance: CYCLOPHOSPHAMIDE
     Indication: Acute lymphocytic leukaemia
     Dosage: 1.4 G, ONE TIME IN ONE DAY, (60 DROPS/MIN), DILUTED WITH 100 ML OF SODIUM CHLORIDE, AS A PART OF VDC
     Route: 041
     Dates: start: 20241104, end: 20241104
  2. SODIUM CHLORIDE [Suspect]
     Active Substance: SODIUM CHLORIDE
     Indication: Medication dilution
     Dosage: 100 ML, ONE TIME IN ONE DAY, (60 DROPS/MIN), USED TO DILUTE CYCLOPHOSPHAMIDE 1.4G
     Route: 041
     Dates: start: 20241104, end: 20241104
  3. SODIUM CHLORIDE [Suspect]
     Active Substance: SODIUM CHLORIDE
     Dosage: 250 ML, ONE TIME IN ONE DAY, (60 DROPS/MIN), USED TO DILUTE IDARUBICIN 20MG
     Route: 041
     Dates: start: 20241104, end: 20241104
  4. SODIUM CHLORIDE [Suspect]
     Active Substance: SODIUM CHLORIDE
     Dosage: 100 ML, ONE TIME IN ONE DAY, (100 DROPS/MIN), USED TO DILUTE VINORELBINE BITARTRATE 40MG
     Route: 041
     Dates: start: 20241104, end: 20241104
  5. IDARUBICIN HYDROCHLORIDE [Suspect]
     Active Substance: IDARUBICIN HYDROCHLORIDE
     Indication: Acute lymphocytic leukaemia
     Dosage: 20 MG, ONE TIME IN ONE DAY, (60 DROPS/MIN), DILUTED WITH 250 ML OF SODIUM CHLORIDE, AS A PART OF VDC
     Route: 041
     Dates: start: 20241104, end: 20241104
  6. VINORELBINE TARTRATE [Suspect]
     Active Substance: VINORELBINE TARTRATE
     Indication: Acute lymphocytic leukaemia
     Dosage: 40 MG, ONE TIME IN ONE DAY, (100 DROPS/MIN), DILUTED WITH 100 ML OF SODIUM CHLORIDE, AS A PART OF VD
     Route: 041
     Dates: start: 20241104, end: 20241104

REACTIONS (3)
  - Myelosuppression [Recovering/Resolving]
  - White blood cell count decreased [Recovering/Resolving]
  - Neutrophil count decreased [Recovering/Resolving]

NARRATIVE: CASE EVENT DATE: 20241106
